FAERS Safety Report 4631137-X (Version None)
Quarter: 2005Q2

REPORT INFORMATION
  Report Type: 
  Country: None (occurrence: None)
  Receive Date: 20050407
  Receipt Date: 20050407
  Transmission Date: 20051028
  Serious: Yes (Hospitalization, Disabling)
  Sender: FDA-Public Use
  Company Number: None

PATIENT
  Age: 74 Year
  Sex: Male

DRUGS (1)
  1. COUMADIN [Suspect]
     Dates: start: 20021015, end: 20030722

REACTIONS (6)
  - ASTHENIA [None]
  - FALL [None]
  - INTERNATIONAL NORMALISED RATIO INCREASED [None]
  - NEUROPATHY [None]
  - PAIN IN EXTREMITY [None]
  - RETROPERITONEAL HAEMORRHAGE [None]
